FAERS Safety Report 8505053-7 (Version None)
Quarter: 2012Q2

REPORT INFORMATION
  Report Type: 
  Country: None (occurrence: None)
  Receive Date: 20120629
  Receipt Date: 20120622
  Transmission Date: 20120825
  Serious: Yes (Other)
  Sender: FDA-Public Use
  Company Number: WAES 1206USA01708

PATIENT
  Age: 18 Year
  Sex: Female

DRUGS (2)
  1. AMLODIPINE [Suspect]
  2. PRINIVIL [Suspect]
     Dosage: PO
     Route: 048

REACTIONS (14)
  - RESPIRATORY FAILURE [None]
  - TOXICITY TO VARIOUS AGENTS [None]
  - AMNESIA [None]
  - CARDIOTOXICITY [None]
  - ACUTE LUNG INJURY [None]
  - DELIRIUM [None]
  - DEEP VEIN THROMBOSIS [None]
  - CARDIAC ARREST [None]
  - SHOCK [None]
  - HYPOTENSION [None]
  - HYPERLIPIDAEMIA [None]
  - METABOLIC ACIDOSIS [None]
  - RENAL FAILURE ACUTE [None]
  - HYPOXIC-ISCHAEMIC ENCEPHALOPATHY [None]
